FAERS Safety Report 25340014 (Version 3)
Quarter: 2025Q2

REPORT INFORMATION
  Report Type: Spontaneous
  Country: US (occurrence: US)
  Receive Date: 20250521
  Receipt Date: 20250630
  Transmission Date: 20250717
  Serious: No
  Sender: LUPIN
  Company Number: US-LUPIN PHARMACEUTICALS INC.-2025-04178

PATIENT
  Sex: Female

DRUGS (1)
  1. NIKKI [Suspect]
     Active Substance: DROSPIRENONE\ETHINYL ESTRADIOL
     Indication: Product used for unknown indication

REACTIONS (5)
  - Vomiting [Unknown]
  - Body temperature fluctuation [Unknown]
  - Hot flush [Unknown]
  - Product label issue [Unknown]
  - Product quality issue [Unknown]
